FAERS Safety Report 5102668-3 (Version None)
Quarter: 2006Q3

REPORT INFORMATION
  Report Type: 
  Country: None (occurrence: None)
  Receive Date: 20060912
  Receipt Date: 20060809
  Transmission Date: 20061208
  Serious: Yes (Hospitalization, Other)
  Sender: FDA-Public Use
  Company Number: PHNR2006AU01021

PATIENT
  Age: 48 Year
  Sex: Female

DRUGS (5)
  1. CLOZARIL [Suspect]
     Indication: SCHIZOAFFECTIVE DISORDER
     Dosage: 12.5-250MG DAILY
     Route: 048
     Dates: start: 20060705, end: 20060801
  2. COVERSYL                                /BEL/ [Suspect]
  3. METOPROLOL TARTRATE [Suspect]
  4. DIABEX [Suspect]
  5. AMARYL [Suspect]

REACTIONS (5)
  - ARRHYTHMIA [None]
  - ATRIAL FLUTTER [None]
  - CARDIOMEGALY [None]
  - EOSINOPHILIA [None]
  - MULTIPLE GATED ACQUISITION SCAN ABNORMAL [None]
